FAERS Safety Report 6564965-4 (Version None)
Quarter: 2010Q1

REPORT INFORMATION
  Report Type: 
  Country: None (occurrence: None)
  Receive Date: 20100201
  Receipt Date: 20100125
  Transmission Date: 20100710
  Serious: Yes (Hospitalization, Other)
  Sender: FDA-Public Use
  Company Number: US-BAYER-200823100NA

PATIENT
  Age: 46 Year
  Sex: Female
  Weight: 82 kg

DRUGS (3)
  1. YAZ [Suspect]
     Indication: MENOPAUSAL SYMPTOMS
     Dates: start: 20071206, end: 20080322
  2. LEXAPRO [Concomitant]
     Indication: DRUG USE FOR UNKNOWN INDICATION
     Dosage: 10/20 MG
     Route: 048
  3. BENICAR [Concomitant]
     Indication: DRUG USE FOR UNKNOWN INDICATION
     Dates: start: 20080321

REACTIONS (8)
  - DEEP VEIN THROMBOSIS [None]
  - GROIN PAIN [None]
  - HEADACHE [None]
  - HYPERTENSION [None]
  - OEDEMA PERIPHERAL [None]
  - PAIN IN EXTREMITY [None]
  - SKIN DISCOLOURATION [None]
  - THROMBOSIS [None]
